FAERS Safety Report 8480426 (Version 4)
Quarter: 2013Q1

REPORT INFORMATION
  Report Type: Spontaneous
  Country: US (occurrence: US)
  Receive Date: 20120328
  Receipt Date: 20130304
  Transmission Date: 20140127
  Serious: Yes (Hospitalization, Other)
  Sender: FDA-Public Use
  Company Number: PHEH2012US006718

PATIENT
  Age: 24 Year
  Sex: Female
  Weight: 47.62 kg

DRUGS (3)
  1. GILENYA [Suspect]
     Indication: MULTIPLE SCLEROSIS
     Dosage: 1 DF, QD
     Route: 048
     Dates: start: 20120118
  2. ATENOLOL [Concomitant]
  3. XANAX [Concomitant]

REACTIONS (7)
  - Multiple sclerosis relapse [Unknown]
  - Abasia [Unknown]
  - Hypotension [Recovering/Resolving]
  - Syncope [Recovering/Resolving]
  - Dizziness [Recovering/Resolving]
  - Heart rate increased [Recovering/Resolving]
  - Vision blurred [Recovering/Resolving]
